FAERS Safety Report 9281398 (Version 1)
Quarter: 2013Q2

REPORT INFORMATION
  Report Type: Report from Study
  Country: DE (occurrence: DE)
  Receive Date: 20130509
  Receipt Date: 20130509
  Transmission Date: 20140414
  Serious: Yes (Hospitalization)
  Sender: FDA-Public Use
  Company Number: DE-US-EMD SERONO, INC.-7209165

PATIENT
  Age: 52 Year
  Sex: Male

DRUGS (1)
  1. REBIF [Suspect]
     Indication: MULTIPLE SCLEROSIS
     Route: 058
     Dates: start: 20101024

REACTIONS (7)
  - Visual acuity reduced [Recovering/Resolving]
  - Loss of consciousness [Recovered/Resolved]
  - Hypotonia [Recovering/Resolving]
  - Urinary retention [Recovering/Resolving]
  - White blood cell count increased [Recovering/Resolving]
  - Urethral injury [Unknown]
  - Influenza like illness [Recovering/Resolving]
